FAERS Safety Report 16895955 (Version 1)
Quarter: 2019Q4

REPORT INFORMATION
  Report Type: Spontaneous
  Country: US (occurrence: US)
  Receive Date: 20191008
  Receipt Date: 20191008
  Transmission Date: 20200122
  Serious: No
  Sender: FDA-Public Use
  Company Number: US-PERRIGO-19US006034

PATIENT
  Age: 69 Year
  Sex: Female
  Weight: 58.05 kg

DRUGS (1)
  1. IMIQUIMOD. [Suspect]
     Active Substance: IMIQUIMOD
     Indication: PRECANCEROUS SKIN LESION
     Dosage: 1 SMALL APPLICATION, SINGLE AT BEDTIME
     Route: 061
     Dates: start: 20190513, end: 20190513

REACTIONS (8)
  - Lip swelling [Recovered/Resolved]
  - Throat tightness [Recovered/Resolved]
  - Pharyngeal swelling [Recovered/Resolved]
  - Increased upper airway secretion [Recovered/Resolved]
  - Eye swelling [Recovering/Resolving]
  - Cough [Recovered/Resolved]
  - Pruritus [Recovered/Resolved]
  - Off label use [Recovered/Resolved]

NARRATIVE: CASE EVENT DATE: 20190313
